FAERS Safety Report 23609822 (Version 1)
Quarter: 2024Q1

REPORT INFORMATION
  Report Type: Spontaneous
  Country: ES (occurrence: ES)
  Receive Date: 20240308
  Receipt Date: 20240308
  Transmission Date: 20240410
  Serious: Yes (Congenital Anomaly, Other)
  Sender: FDA-Public Use
  Company Number: ES-CELLTRION INC.-2024ES005433

PATIENT

DRUGS (10)
  1. INFLIXIMAB [Suspect]
     Active Substance: INFLIXIMAB
     Indication: Product used for unknown indication
     Dosage: UNK
     Dates: start: 20191101, end: 20200803
  2. LEVOSULPIRIDE [Concomitant]
     Active Substance: LEVOSULPIRIDE
     Dosage: 25 MG, EVERY 12 HOURS
     Dates: start: 20161130
  3. CALCIFEDIOL [Concomitant]
     Active Substance: CALCIFEDIOL
     Dosage: 1 DF, EVERY 24 HOURS
     Dates: start: 20191218
  4. LORAZEPAM [Concomitant]
     Active Substance: LORAZEPAM
     Dosage: 1 MG, EVERY 12 HOURS
     Dates: start: 20191218
  5. ESOMEPRAZOLE SODIUM [Concomitant]
     Active Substance: ESOMEPRAZOLE SODIUM
     Dosage: 20 MG, EVERY 12 HOURS
     Dates: start: 20160322
  6. RILAST [BUDESONIDE;FORMOTEROL FUMARATE] [Concomitant]
     Dosage: 2 DF, EVERY 12 HOURS
     Dates: start: 20161212
  7. SIMVASTATIN [Concomitant]
     Active Substance: SIMVASTATIN
     Dosage: 10 MG, ONE PER DAY
     Dates: start: 20170518
  8. CYANOCOBALAMIN [Concomitant]
     Active Substance: CYANOCOBALAMIN
     Dosage: 1 DF, EVERY 28 DAYS
     Dates: start: 20160322
  9. FLUOXETINE HYDROCHLORIDE [Concomitant]
     Active Substance: FLUOXETINE HYDROCHLORIDE
     Dosage: 20 MG, EVERY 24 HOURS
     Dates: start: 20160829
  10. METAMIZOLE MAGNESIUM [Concomitant]
     Active Substance: METAMIZOLE MAGNESIUM
     Dosage: 575 MG, EVERY 8 HOURS
     Dates: start: 20170504

REACTIONS (1)
  - Hepatocellular injury [Recovering/Resolving]

NARRATIVE: CASE EVENT DATE: 20200701
